FAERS Safety Report 6057464-X (Version None)
Quarter: 2009Q1

REPORT INFORMATION
  Report Type: 
  Country: None (occurrence: None)
  Receive Date: 20090126
  Receipt Date: 20090107
  Transmission Date: 20090719
  Serious: Yes (Death)
  Sender: FDA-Public Use
  Company Number: B0553731A

PATIENT
  Sex: Male

DRUGS (6)
  1. PAROXETINE HYDROCHLORIDE [Suspect]
     Dosage: ORAL
     Route: 048
  2. DEXTROMETHORPHAN HYDROBROMIDE [Suspect]
  3. DIPHENHYDRAMINE (FORMUILATION UNKNOWN) (DIPHENHYDRAMINE) [Suspect]
  4. HYDROCODONE BITARTRATE + ACETAMINOPHEN [Suspect]
  5. ETHANOL (FORMULATION UNKNOWN) (ALCOHOL) [Suspect]
  6. DEXTROPROP. + PARACETAMOL (FORMULATION UNKNOWN) (PROPOXYPHENE + ACETAM [Suspect]

REACTIONS (1)
  - COMPLETED SUICIDE [None]
